FAERS Safety Report 7603151-3 (Version None)
Quarter: 2011Q2

REPORT INFORMATION
  Report Type: 
  Country: None (occurrence: None)
  Receive Date: 20110630
  Receipt Date: 20110620
  Transmission Date: 20111010
  Serious: Yes (Other)
  Sender: FDA-Public Use
  Company Number: WAES 1106ESP00075

PATIENT
  Age: 79 Year
  Sex: Male

DRUGS (5)
  1. PIPERACILLIN AND TAZOBACTAM [Concomitant]
  2. VANCOMYCIN [Concomitant]
  3. FLUCONAZOLE [Concomitant]
  4. IMIPENEM AND CILASTATIN SODIUM [Suspect]
     Indication: INTESTINAL OBSTRUCTION
     Dosage: 50-500 MG/Q8H
     Route: 042
     Dates: start: 20110516, end: 20110601
  5. IMIPENEM AND CILASTATIN SODIUM [Suspect]
     Indication: PNEUMONIA KLEBSIELLA
     Dosage: 50-500 MG/Q8H
     Route: 042
     Dates: start: 20110516, end: 20110601

REACTIONS (5)
  - ESCHERICHIA TEST POSITIVE [None]
  - SUBDIAPHRAGMATIC ABSCESS [None]
  - STENOTROPHOMONAS TEST POSITIVE [None]
  - ENTEROBACTER TEST POSITIVE [None]
  - LIVER ABSCESS [None]
